FAERS Safety Report 7937655-0 (Version None)
Quarter: 2011Q4

REPORT INFORMATION
  Report Type: 
  Country: None (occurrence: None)
  Receive Date: 20111123
  Receipt Date: 20111115
  Transmission Date: 20120403
  Serious: Yes (Hospitalization)
  Sender: FDA-Public Use
  Company Number: PHHY2011CA101520

PATIENT
  Sex: Female

DRUGS (7)
  1. ACTONEL [Concomitant]
  2. ALISKIREN [Suspect]
     Dosage: UNK UKN, UNK
  3. NORVASC [Concomitant]
  4. CRESTOR [Concomitant]
  5. CALCIUM [Concomitant]
  6. ASPIRIN [Concomitant]
  7. GLUCOPHAGE [Concomitant]

REACTIONS (1)
  - FEMORAL ARTERY OCCLUSION [None]
